FAERS Safety Report 12071891 (Version 1)
Quarter: 2016Q1

REPORT INFORMATION
  Report Type: Report from Study
  Country: CA (occurrence: CA)
  Receive Date: 20160212
  Receipt Date: 20160212
  Transmission Date: 20160526
  Serious: Yes (Hospitalization, Other)
  Sender: FDA-Public Use
  Company Number: CA-ROCHE-1653796

PATIENT
  Age: 72 Year
  Sex: Female

DRUGS (18)
  1. METHYLPREDNISOLONE. [Concomitant]
     Active Substance: METHYLPREDNISOLONE
     Indication: PREMEDICATION
     Route: 042
     Dates: start: 20151029
  2. SULFASALAZINE. [Concomitant]
     Active Substance: SULFASALAZINE
  3. TRIAZIDE [Concomitant]
  4. SYNTHROID [Concomitant]
     Active Substance: LEVOTHYROXINE SODIUM
  5. FISH OIL [Concomitant]
     Active Substance: FISH OIL
  6. DIPHENHYDRAMINE HCL [Concomitant]
     Active Substance: DIPHENHYDRAMINE HYDROCHLORIDE
     Indication: PREMEDICATION
     Route: 048
     Dates: start: 20151029
  7. ELTROXIN [Concomitant]
     Active Substance: LEVOTHYROXINE
  8. ACTONEL [Concomitant]
     Active Substance: RISEDRONATE SODIUM
  9. PRESERVISION [Concomitant]
     Active Substance: MINERALS\VITAMINS
  10. ATIVAN [Concomitant]
     Active Substance: LORAZEPAM
  11. RABEPRAZOLE [Concomitant]
     Active Substance: RABEPRAZOLE
  12. MELOXICAM. [Concomitant]
     Active Substance: MELOXICAM
  13. PREDNISONE. [Concomitant]
     Active Substance: PREDNISONE
  14. ACETAMINOPHEN. [Concomitant]
     Active Substance: ACETAMINOPHEN
     Indication: PREMEDICATION
     Route: 048
     Dates: start: 20151029
  15. AMLODIPINE [Concomitant]
     Active Substance: AMLODIPINE BESYLATE
  16. RITUXAN [Suspect]
     Active Substance: RITUXIMAB
     Indication: RHEUMATOID ARTHRITIS
     Route: 042
     Dates: start: 20151029
  17. IMURAN [Concomitant]
     Active Substance: AZATHIOPRINE
  18. LUTEIN [Concomitant]
     Active Substance: LUTEIN

REACTIONS (10)
  - Activities of daily living impaired [Unknown]
  - Fatigue [Recovering/Resolving]
  - Nervousness [Unknown]
  - Pneumonia [Unknown]
  - Dyspnoea [Not Recovered/Not Resolved]
  - Arthralgia [Recovering/Resolving]
  - Respiratory disorder [Unknown]
  - Heart rate irregular [Unknown]
  - Blood pressure fluctuation [Unknown]
  - Nausea [Recovering/Resolving]

NARRATIVE: CASE EVENT DATE: 20151029
